FAERS Safety Report 14343656 (Version 1)
Quarter: 2018Q1

REPORT INFORMATION
  Report Type: Spontaneous
  Country: US (occurrence: US)
  Receive Date: 20180102
  Receipt Date: 20180102
  Transmission Date: 20180509
  Serious: No
  Sender: FDA-Public Use
  Company Number: US-PFIZER INC-2018000328

PATIENT
  Age: 39 Year
  Sex: Male
  Weight: 122.47 kg

DRUGS (1)
  1. KERYDIN [Suspect]
     Active Substance: TAVABOROLE
     Indication: ONYCHOMYCOSIS
     Dosage: 1 DROP FOR EACH NAIL AFFECTED, 1X/DAY (EVERY NIGHT)
     Dates: start: 201703

REACTIONS (4)
  - Paraesthesia [Unknown]
  - Gait disturbance [Not Recovered/Not Resolved]
  - Blister [Not Recovered/Not Resolved]
  - Burning sensation [Unknown]
